FAERS Safety Report 9753624 (Version 5)
Quarter: 2014Q1

REPORT INFORMATION
  Report Type: Report from Study
  Country: US (occurrence: US)
  Receive Date: 20131213
  Receipt Date: 20140228
  Transmission Date: 20141002
  Serious: Yes (Hospitalization, Other)
  Sender: FDA-Public Use
  Company Number: US-ABBVIE-13P-163-1099248-00

PATIENT
  Age: 60 Year
  Sex: Male
  Weight: 87.17 kg

DRUGS (15)
  1. HUMIRA [Suspect]
     Indication: COLITIS ULCERATIVE
     Dates: start: 20130430, end: 20130430
  2. HUMIRA [Suspect]
     Dates: start: 20130514, end: 20130514
  3. HUMIRA [Suspect]
     Dates: start: 20130528, end: 20130926
  4. HUMIRA [Suspect]
     Dates: start: 20140125
  5. AMITRIPTYLINE [Concomitant]
     Indication: INSOMNIA
     Dosage: AT BEDTIME
  6. PREDNISONE [Concomitant]
     Indication: PRODUCT USED FOR UNKNOWN INDICATION
     Dosage: REDUCED TO ALTERNATING BETWEEN 30MG AND 35MG)
     Route: 048
  7. PREDNISONE [Concomitant]
  8. LIALDA [Concomitant]
     Indication: PRODUCT USED FOR UNKNOWN INDICATION
     Dosage: IN AM
  9. LIALDA [Concomitant]
  10. TESTIM [Concomitant]
     Indication: BLOOD TESTOSTERONE DECREASED
     Dosage: DAILY
     Route: 061
  11. CIALIS [Concomitant]
     Indication: POLYMEDICATION
  12. CIALIS [Concomitant]
     Indication: ERECTILE DYSFUNCTION
  13. CRESTOR [Concomitant]
     Indication: PRODUCT USED FOR UNKNOWN INDICATION
  14. LEVOLOR [Concomitant]
     Dosage: AT NIGHT
  15. QNASAL [Concomitant]
     Indication: HYPERSENSITIVITY

REACTIONS (22)
  - Laceration [Unknown]
  - Wound haemorrhage [Unknown]
  - Limb injury [Unknown]
  - Deep vein thrombosis [Recovered/Resolved]
  - Limb discomfort [Not Recovered/Not Resolved]
  - Pain in extremity [Not Recovered/Not Resolved]
  - Muscle spasms [Recovering/Resolving]
  - Bone pain [Not Recovered/Not Resolved]
  - Limb discomfort [Unknown]
  - Local swelling [Unknown]
  - Pain in extremity [Unknown]
  - Vein disorder [Unknown]
  - Fatigue [Not Recovered/Not Resolved]
  - Blood iron decreased [Unknown]
  - Colitis ulcerative [Unknown]
  - Psoriasis [Unknown]
  - Cardiac failure congestive [Not Recovered/Not Resolved]
  - Frequent bowel movements [Not Recovered/Not Resolved]
  - Diarrhoea [Not Recovered/Not Resolved]
  - Haematochezia [Not Recovered/Not Resolved]
  - Lymphadenopathy [Not Recovered/Not Resolved]
  - Pharyngeal oedema [Not Recovered/Not Resolved]
